FAERS Safety Report 14312671 (Version 1)
Quarter: 2017Q4

REPORT INFORMATION
  Report Type: Spontaneous
  Country: US (occurrence: US)
  Receive Date: 20171220
  Receipt Date: 20171220
  Transmission Date: 20180321
  Serious: No
  Sender: FDA-Public Use
  Company Number: None

PATIENT
  Age: 62 Year
  Sex: Male

DRUGS (1)
  1. IBUPROFEN. [Suspect]
     Active Substance: IBUPROFEN
     Indication: PAIN
     Route: 048

REACTIONS (5)
  - Dyspnoea [None]
  - Angioedema [None]
  - Rash [None]
  - Eye swelling [None]
  - Urticaria [None]

NARRATIVE: CASE EVENT DATE: 20171002
